FAERS Safety Report 7862208-2 (Version None)
Quarter: 2011Q4

REPORT INFORMATION
  Report Type: 
  Country: None (occurrence: None)
  Receive Date: 20111027
  Receipt Date: 20101104
  Transmission Date: 20120403
  Serious: No
  Sender: FDA-Public Use
  Company Number: US-AMGEN-KDL376689

PATIENT
  Age: 54 Year
  Sex: Female
  Weight: 81.7 kg

DRUGS (2)
  1. ENBREL [Suspect]
     Indication: RHEUMATOID ARTHRITIS
     Dosage: 50 MG, QWK
     Route: 058
     Dates: start: 20090627
  2. ENBREL [Suspect]
     Dates: start: 20090601

REACTIONS (6)
  - INJECTION SITE ERYTHEMA [None]
  - STAPHYLOCOCCAL INFECTION [None]
  - INJECTION SITE PAIN [None]
  - RHEUMATOID NODULE [None]
  - INJECTION SITE PRURITUS [None]
  - POSTOPERATIVE WOUND INFECTION [None]
